FAERS Safety Report 15883530 (Version 1)
Quarter: 2019Q1

REPORT INFORMATION
  Report Type: Spontaneous
  Country: US (occurrence: US)
  Receive Date: 20190129
  Receipt Date: 20190129
  Transmission Date: 20190417
  Serious: Yes (Other)
  Sender: FDA-Public Use
  Company Number: US-SANIK-2019SA020304AA

PATIENT

DRUGS (1)
  1. ALLEGRA ALLERGY [Suspect]
     Active Substance: FEXOFENADINE HYDROCHLORIDE
     Indication: SINUS CONGESTION
     Dosage: UNK
     Route: 065

REACTIONS (1)
  - Drug dependence [Unknown]
